FAERS Safety Report 23611827 (Version 1)
Quarter: 2024Q1

REPORT INFORMATION
  Report Type: Spontaneous
  Country: TW (occurrence: TW)
  Receive Date: 20240308
  Receipt Date: 20240308
  Transmission Date: 20240410
  Serious: Yes (Other)
  Sender: FDA-Public Use
  Company Number: TW-AMGEN-TWNSP2024044127

PATIENT
  Age: 53 Year
  Sex: Male
  Weight: 72.2 kg

DRUGS (14)
  1. BLINCYTO [Suspect]
     Active Substance: BLINATUMOMAB
     Indication: Minimal residual disease
     Dosage: UNK
     Route: 065
     Dates: start: 20240122, end: 2024
  2. BLINCYTO [Suspect]
     Active Substance: BLINATUMOMAB
     Indication: B precursor type acute leukaemia
     Dosage: 9 MICROGRAM, QD
     Route: 065
     Dates: start: 20240212, end: 20240219
  3. BLINCYTO [Suspect]
     Active Substance: BLINATUMOMAB
     Dosage: 28 MICROGRAM, QD
     Route: 065
     Dates: start: 20240220
  4. SULFAMETHOXAZOLE\TRIMETHOPRIM [Concomitant]
     Active Substance: SULFAMETHOXAZOLE\TRIMETHOPRIM
     Dosage: UNK
  5. ISAVUCONAZOLE [Concomitant]
     Active Substance: ISAVUCONAZOLE
     Dosage: UNK
  6. FLUDARABINE [Concomitant]
     Active Substance: FLUDARABINE PHOSPHATE
     Dosage: 30 MILLIGRAM/SQ. METER, QD, IN NORMAL SALINE 100 ML IF OVER 30 MINUTES ON D-7 TO D-3
  7. BUSULFAN [Concomitant]
     Active Substance: BUSULFAN
     Dosage: 3.2 MILLIGRAM/KILOGRAM, QD
  8. BUSULFAN [Concomitant]
     Active Substance: BUSULFAN
     Dosage: 60 MILLIGRAM/10CC/AMP
  9. KEPPRA [Concomitant]
     Active Substance: LEVETIRACETAM
     Dosage: UNK UNK, BID
     Route: 048
  10. CYCLOPHOSPHAMIDE [Concomitant]
     Active Substance: CYCLOPHOSPHAMIDE
     Dosage: 60 MILLIGRAM/KILOGRAM, QD, NORMAL SALINE I 00CC IF 2.5 HOURS QD ON D-3
  11. MESNA [Concomitant]
     Active Substance: MESNA
     Dosage: 30 MILLIGRAM/KILOGRAM, 1800 MG IN NS 1 00CC IF QD 1 HR BEFORE EACH ENDOXAN
  12. MESNA [Concomitant]
     Active Substance: MESNA
     Dosage: 30 MILLIGRAM/KILOGRAMX, 1800 MG IN NS 500CE IF QD 8 HRS AFTER EACH ENDOXAN
  13. MESNA [Concomitant]
     Active Substance: MESNA
     Dosage: 30 MILLIGRAM/KILOGRAM, 1800 MG IN NS 500CC IF QD 14 HRS AFTER EACH ENDOXAN
  14. LAPINE T-LYMPHOCYTE IMMUNE GLOBULIN [Concomitant]
     Active Substance: LAPINE T-LYMPHOCYTE IMMUNE GLOBULIN
     Dosage: 2.5 MILLIGRAM/KILOGRAM, 175 MG IN N/S 500 ML

REACTIONS (3)
  - Hepatitis [Unknown]
  - Haemangioma [Unknown]
  - Hepatic steatosis [Unknown]

NARRATIVE: CASE EVENT DATE: 20240101
